FAERS Safety Report 11704456 (Version 1)
Quarter: 2015Q4

REPORT INFORMATION
  Report Type: Spontaneous
  Country: US (occurrence: US)
  Receive Date: 20151106
  Receipt Date: 20151106
  Transmission Date: 20160304
  Serious: No
  Sender: FDA-Public Use
  Company Number: US-PFIZER INC-2015354700

PATIENT
  Sex: Female

DRUGS (3)
  1. CALTRATE [Suspect]
     Active Substance: CALCIUM CARBONATE
     Dosage: UNK
     Route: 048
  2. ADVIL [Suspect]
     Active Substance: IBUPROFEN
     Dosage: UNK
     Route: 048
  3. CENTRUM [Suspect]
     Active Substance: VITAMINS
     Dosage: UNK
     Route: 048

REACTIONS (2)
  - Dysphagia [Unknown]
  - Product difficult to swallow [Unknown]
